FAERS Safety Report 5161743-8 (Version None)
Quarter: 2006Q4

REPORT INFORMATION
  Report Type: 
  Country: None (occurrence: None)
  Receive Date: 20061130
  Receipt Date: 20061115
  Transmission Date: 20070319
  Serious: Yes (Hospitalization)
  Sender: FDA-Public Use
  Company Number: PK-GLAXOSMITHKLINE-B0446814A

PATIENT
  Age: 41 Year
  Sex: Female
  Weight: 68 kg

DRUGS (3)
  1. GW679769 [Suspect]
     Indication: PROPHYLAXIS OF NAUSEA AND VOMITING
     Route: 050
     Dates: start: 20061108, end: 20061110
  2. DEXAMETHASONE TAB [Suspect]
     Indication: PROPHYLAXIS OF NAUSEA AND VOMITING
     Route: 048
     Dates: start: 20061108, end: 20061111
  3. ZOFRAN [Suspect]
     Indication: PROPHYLAXIS OF NAUSEA AND VOMITING
     Dosage: 32MG PER DAY
     Route: 042
     Dates: start: 20061108, end: 20061108

REACTIONS (1)
  - EXTRAPYRAMIDAL DISORDER [None]
